FAERS Safety Report 9629519 (Version 1)
Quarter: 2013Q4

REPORT INFORMATION
  Report Type: Spontaneous
  Country: DE (occurrence: DE)
  Receive Date: 20131017
  Receipt Date: 20131017
  Transmission Date: 20140711
  Serious: Yes (Other)
  Sender: FDA-Public Use
  Company Number: DE-PFIZER INC-2013291782

PATIENT
  Sex: Female

DRUGS (1)
  1. ZYVOXID [Suspect]

REACTIONS (3)
  - Cellulitis [Unknown]
  - Staphylococcal infection [Unknown]
  - Bacterial infection [Unknown]
